FAERS Safety Report 21089255 (Version 1)
Quarter: 2022Q3

REPORT INFORMATION
  Report Type: Spontaneous
  Country: GB (occurrence: GB)
  Receive Date: 20220715
  Receipt Date: 20220715
  Transmission Date: 20221027
  Serious: Yes (Life-Threatening, Hospitalization, Other)
  Sender: FDA-Public Use
  Company Number: None

PATIENT
  Age: 65 Year
  Sex: Female
  Weight: 117 kg

DRUGS (4)
  1. ESTRADIOL [Suspect]
     Active Substance: ESTRADIOL
     Indication: Hormone replacement therapy
     Dosage: UNK
     Dates: end: 20220630
  2. FERROUS FUMARATE [Concomitant]
     Active Substance: FERROUS FUMARATE
     Indication: Iron deficiency anaemia
     Dosage: UNK
  3. ESTRIOL [Concomitant]
     Active Substance: ESTRIOL
     Dosage: 0.4 MG
  4. PROGESTERONE [Concomitant]
     Active Substance: PROGESTERONE
     Dosage: 75 MG

REACTIONS (2)
  - Pulmonary embolism [Recovering/Resolving]
  - Myocardial injury [Unknown]

NARRATIVE: CASE EVENT DATE: 20220601
